FAERS Safety Report 14789140 (Version 2)
Quarter: 2018Q2

REPORT INFORMATION
  Report Type: Spontaneous
  Country: DE (occurrence: DE)
  Receive Date: 20180423
  Receipt Date: 20180423
  Transmission Date: 20180711
  Serious: Yes (Life-Threatening, Hospitalization)
  Sender: FDA-Public Use
  Company Number: PHHY2017DE191494

PATIENT
  Age: 74 Year

DRUGS (3)
  1. SODIUM CHLORIDE. [Suspect]
     Active Substance: SODIUM CHLORIDE
     Indication: PRODUCT USED FOR UNKNOWN INDICATION
     Dosage: 40 ML, UNK
     Route: 008
  2. DEXAMETHASONE. [Suspect]
     Active Substance: DEXAMETHASONE
     Indication: PRODUCT USED FOR UNKNOWN INDICATION
     Dosage: 40 MG, UNK
     Route: 042
  3. ROPIVACAINE [Concomitant]
     Active Substance: ROPIVACAINE
     Dosage: AT 4 ML/H
     Route: 008

REACTIONS (10)
  - Pain in extremity [Unknown]
  - Agitation [Unknown]
  - Stress cardiomyopathy [Unknown]
  - Quadriplegia [Recovered/Resolved]
  - Spinal cord paralysis [Recovered/Resolved]
  - Drug ineffective [Unknown]
  - Incorrect route of drug administration [Unknown]
  - Anal pruritus [Unknown]
  - Pruritus generalised [Unknown]
  - Respiratory depression [Unknown]
